FAERS Safety Report 24609119 (Version 1)
Quarter: 2024Q4

REPORT INFORMATION
  Report Type: Spontaneous
  Country: CN (occurrence: CN)
  Receive Date: 20241112
  Receipt Date: 20241112
  Transmission Date: 20250115
  Serious: Yes (Other)
  Sender: PFIZER
  Company Number: CN-PFIZER INC-PV202400146578

PATIENT
  Age: 10 Year
  Sex: Male
  Weight: 25 kg

DRUGS (2)
  1. METHOTREXATE SODIUM [Suspect]
     Active Substance: METHOTREXATE SODIUM
     Indication: Chemotherapy
     Dosage: 4800 MG, 1X/DAY
     Route: 041
     Dates: start: 20241101, end: 20241101
  2. SODIUM CHLORIDE [Concomitant]
     Active Substance: SODIUM CHLORIDE
     Indication: Vehicle solution use
     Dosage: 500 ML, 1X/DAY
     Route: 041
     Dates: start: 20241101, end: 20241101

REACTIONS (1)
  - Mucosal disorder [Recovering/Resolving]

NARRATIVE: CASE EVENT DATE: 20241103
